FAERS Safety Report 5895919-9 (Version None)
Quarter: 2008Q3

REPORT INFORMATION
  Report Type: 
  Country: None (occurrence: None)
  Receive Date: 20080924
  Receipt Date: 20080917
  Transmission Date: 20090109
  Serious: Yes (Hospitalization)
  Sender: FDA-Public Use
  Company Number: GB-ROXANE LABORATORIES, INC.-2008-RO-00066RO

PATIENT
  Age: 56 Year
  Sex: Male

DRUGS (11)
  1. MORPHINE [Suspect]
     Indication: ANALGESIA
  2. HYDROMORPHONE HCL [Suspect]
     Indication: ANALGESIA
     Route: 058
  3. OXYCONTIN [Suspect]
     Indication: ANALGESIA
  4. HALOPERIDOL [Suspect]
  5. ACETAMINOPHEN [Suspect]
     Dosage: 4G
  6. GABAPENTIN [Suspect]
     Dosage: 900MG
  7. FENTANYL [Suspect]
     Indication: PAIN
  8. ALFENTANIL [Concomitant]
     Indication: DRUG WITHDRAWAL SYNDROME
     Dosage: 9MG
     Route: 058
  9. ALFENTANIL [Concomitant]
     Dosage: 15MG
     Route: 058
  10. ALFENTANIL [Concomitant]
     Dosage: 50MG
     Route: 058
  11. HYDROMORPHONE HCL [Concomitant]
     Indication: DRUG WITHDRAWAL SYNDROME
     Route: 058

REACTIONS (6)
  - BACK PAIN [None]
  - DRUG EFFECT DECREASED [None]
  - DRUG WITHDRAWAL SYNDROME [None]
  - INFECTION [None]
  - RENAL IMPAIRMENT [None]
  - THERAPEUTIC AGENT TOXICITY [None]
